FAERS Safety Report 9795896 (Version 5)
Quarter: 2014Q1

REPORT INFORMATION
  Report Type: Spontaneous
  Country: US (occurrence: US)
  Receive Date: 20140103
  Receipt Date: 20140207
  Transmission Date: 20141002
  Serious: Yes (Hospitalization)
  Sender: FDA-Public Use
  Company Number: US-PFIZER INC-2013355735

PATIENT
  Age: 61 Year
  Sex: Female
  Weight: 53.52 kg

DRUGS (4)
  1. PREMARIN [Suspect]
     Indication: MENOPAUSAL SYMPTOMS
     Dosage: 1.2 G, 2X/WEEK
     Route: 067
     Dates: start: 20131128
  2. PREMARIN [Suspect]
     Dosage: 1 G, 2X/WEEK AT BEDTIME
     Route: 067
     Dates: end: 201312
  3. METHOTREXATE [Concomitant]
     Indication: RHEUMATOID ARTHRITIS
     Dosage: UNK, WEEKLY
  4. LEVOTHYROXINE [Concomitant]
     Dosage: UNK

REACTIONS (2)
  - Accident [Unknown]
  - Limb injury [Unknown]
